FAERS Safety Report 22222435 (Version 2)
Quarter: 2023Q2

REPORT INFORMATION
  Report Type: Spontaneous
  Country: CN (occurrence: CN)
  Receive Date: 20230418
  Receipt Date: 20230503
  Transmission Date: 20230721
  Serious: Yes (Other)
  Sender: FDA-Public Use
  Company Number: CN-BAYER-2023A047133

PATIENT
  Age: 71 Year
  Sex: Female

DRUGS (1)
  1. POLYETHYLENE GLYCOL 3350 [Suspect]
     Active Substance: POLYETHYLENE GLYCOL 3350
     Indication: Bowel preparation
     Dosage: DISSOLVE IN 3000ML WARM WATER, TAKE 6 TIMES ORALLY, 500ML/30MIN
     Route: 048
     Dates: start: 20180709, end: 20180709

REACTIONS (11)
  - Electrolyte imbalance [None]
  - Metabolic acidosis [None]
  - Coma [None]
  - Convulsions local [None]
  - Trismus [None]
  - Hyponatraemic encephalopathy [None]
  - Epilepsy [Recovered/Resolved]
  - Vomiting [None]
  - Urine output increased [None]
  - Off label use [None]
  - Off label use [None]

NARRATIVE: CASE EVENT DATE: 20180709
